FAERS Safety Report 9005941 (Version 2)
Quarter: 2013Q1

REPORT INFORMATION
  Report Type: Spontaneous
  Country: US (occurrence: US)
  Receive Date: 20130109
  Receipt Date: 20130207
  Transmission Date: 20140127
  Serious: No
  Sender: FDA-Public Use
  Company Number: US-PFIZER INC-2013009600

PATIENT
  Age: 79 Year
  Sex: Male
  Weight: 81.63 kg

DRUGS (3)
  1. LIPITOR [Suspect]
     Indication: BLOOD CHOLESTEROL INCREASED
     Dosage: 20 MG, ONCE A DAY
     Route: 048
  2. LIPITOR [Suspect]
     Dosage: UNK, ONCE A DAY
     Route: 048
  3. BABY ASPIRIN [Concomitant]
     Indication: ANTICOAGULANT THERAPY
     Dosage: UNK, ONCE A DAY

REACTIONS (2)
  - Rhinorrhoea [Unknown]
  - Headache [Unknown]
